FAERS Safety Report 7238233-1 (Version None)
Quarter: 2011Q1

REPORT INFORMATION
  Report Type: 
  Country: None (occurrence: None)
  Receive Date: 20110121
  Receipt Date: 20110113
  Transmission Date: 20110831
  Serious: No
  Sender: FDA-Public Use
  Company Number: US-PFIZER INC-2010101887

PATIENT
  Age: 56 Year
  Sex: Female

DRUGS (6)
  1. LIPITOR [Suspect]
     Indication: BLOOD CHOLESTEROL INCREASED
     Dosage: UNK
  2. VITAMIN D [Concomitant]
     Dosage: UNK
  3. PREMARIN [Suspect]
     Indication: HOT FLUSH
     Dosage: 0.5 MG, UNK
     Dates: start: 20070101
  4. VITAMIN B [Concomitant]
  5. PREMARIN [Suspect]
     Dosage: 0.9 MG, UNK
  6. FISH OIL [Concomitant]
     Dosage: UNK

REACTIONS (3)
  - BLOOD CHOLESTEROL INCREASED [None]
  - DRUG INEFFECTIVE [None]
  - HYPERHIDROSIS [None]
